FAERS Safety Report 22205258 (Version 1)
Quarter: 2023Q2

REPORT INFORMATION
  Report Type: Spontaneous
  Country: IN (occurrence: IN)
  Receive Date: 20230413
  Receipt Date: 20230413
  Transmission Date: 20230722
  Serious: Yes (Other)
  Sender: FDA-Public Use
  Company Number: IN-CIPLA (EU) LIMITED-2023IN01935

PATIENT

DRUGS (5)
  1. FLUOXETINE [Suspect]
     Active Substance: FLUOXETINE HYDROCHLORIDE
     Indication: Obsessive-compulsive disorder
     Dosage: 60 MG
     Route: 065
  2. SERTRALINE [Suspect]
     Active Substance: SERTRALINE HYDROCHLORIDE
     Indication: Obsessive-compulsive disorder
     Dosage: 200 MG
     Route: 065
  3. DESVENLAFAXINE [Suspect]
     Active Substance: DESVENLAFAXINE
     Indication: Obsessive-compulsive disorder
     Dosage: 100 MG
     Route: 065
  4. CLOMIPRAMINE [Suspect]
     Active Substance: CLOMIPRAMINE
     Indication: Obsessive-compulsive disorder
     Dosage: 225 MG
     Route: 065
  5. CARBAMAZEPINE [Concomitant]
     Active Substance: CARBAMAZEPINE
     Indication: Partial seizures with secondary generalisation
     Dosage: UNK
     Route: 065
     Dates: start: 202201

REACTIONS (1)
  - Treatment failure [Unknown]
